FAERS Safety Report 9704855 (Version 1)
Quarter: 2013Q4

REPORT INFORMATION
  Report Type: Spontaneous
  Country: US (occurrence: US)
  Receive Date: 20131122
  Receipt Date: 20131122
  Transmission Date: 20140711
  Serious: Yes (Hospitalization)
  Sender: FDA-Public Use
  Company Number: US-BAYER-2013-140442

PATIENT
  Age: 86 Year
  Sex: Male

DRUGS (1)
  1. PHILLIPS^ MILK OF MAGNESIA [Suspect]
     Indication: CONSTIPATION
     Dosage: UNK
     Route: 048

REACTIONS (10)
  - Renal failure [Unknown]
  - Cardiac failure congestive [Unknown]
  - Atrial fibrillation [Recovered/Resolved]
  - Renal injury [Not Recovered/Not Resolved]
  - Heart rate decreased [Recovered/Resolved]
  - Incorrect drug administration duration [None]
  - Incorrect dose administered [None]
  - Localised infection [Not Recovered/Not Resolved]
  - Blood magnesium increased [Recovered/Resolved]
  - Dehydration [Recovered/Resolved]
